FAERS Safety Report 21922453 (Version 1)
Quarter: 2023Q1

REPORT INFORMATION
  Report Type: Spontaneous
  Country: US (occurrence: US)
  Receive Date: 20230128
  Receipt Date: 20230128
  Transmission Date: 20230418
  Serious: Yes (Other)
  Sender: FDA-Public Use
  Company Number: US-CHIESI-2023CHF00404

PATIENT
  Sex: Male
  Weight: 179 kg

DRUGS (1)
  1. KENGREAL [Suspect]
     Active Substance: CANGRELOR
     Indication: Percutaneous coronary intervention
     Dosage: UNK
     Route: 042
     Dates: start: 20230114, end: 20230114

REACTIONS (3)
  - Vascular stent thrombosis [Recovered/Resolved]
  - Chest pain [Recovered/Resolved]
  - Off label use [Recovered/Resolved]

NARRATIVE: CASE EVENT DATE: 20230114
